FAERS Safety Report 12571092 (Version 2)
Quarter: 2025Q3

REPORT INFORMATION
  Report Type: Spontaneous
  Country: BR (occurrence: BR)
  Receive Date: 20160719
  Receipt Date: 20250822
  Transmission Date: 20251020
  Serious: Yes (Death, Hospitalization, Other)
  Sender: SANOFI AVENTIS
  Company Number: BR-SA-2016SA130142

PATIENT
  Age: 20 Year
  Sex: Female

DRUGS (5)
  1. PREDNISONE [Suspect]
     Active Substance: PREDNISONE
     Indication: Systemic lupus erythematosus
     Dosage: 60 MG,QD
  2. CHLOROQUINE PHOSPHATE [Suspect]
     Active Substance: CHLOROQUINE PHOSPHATE
     Indication: Systemic lupus erythematosus
     Dosage: 250 MG,QD
  3. METHYLPREDNISOLONE HEMISUCCINATE [Suspect]
     Active Substance: METHYLPREDNISOLONE HEMISUCCINATE
     Indication: Systemic lupus erythematosus
     Dosage: 1 G,QD
     Route: 042
  4. AZATHIOPRINE [Suspect]
     Active Substance: AZATHIOPRINE
     Indication: Systemic lupus erythematosus
     Dosage: 100 MG,QD
  5. METRONIDAZOLE [Concomitant]
     Active Substance: METRONIDAZOLE
     Indication: Systemic lupus erythematosus

REACTIONS (17)
  - Disseminated tuberculosis [Fatal]
  - Pyrexia [Fatal]
  - Brain herniation [Fatal]
  - Papilloedema [Fatal]
  - Coma [Fatal]
  - Pulmonary tuberculosis [Fatal]
  - Lung infiltration [Fatal]
  - Peritoneal tuberculosis [Fatal]
  - Pneumoperitoneum [Fatal]
  - Abdominal pain [Fatal]
  - Vasculitis gastrointestinal [Fatal]
  - Large intestine perforation [Fatal]
  - Tuberculosis sepsis [Fatal]
  - Necrosis [Fatal]
  - Granuloma [Fatal]
  - Skin mass [Fatal]
  - Cutaneous vasculitis [Fatal]
